FAERS Safety Report 5066913-5 (Version None)
Quarter: 2006Q3

REPORT INFORMATION
  Report Type: 
  Country: None (occurrence: None)
  Receive Date: 20060726
  Receipt Date: 20060726
  Transmission Date: 20061208
  Serious: Yes (Death)
  Sender: FDA-Public Use
  Company Number: 2006S1002399

PATIENT
  Age: 89 Year
  Sex: Male

DRUGS (1)
  1. CLOZAPINE [Suspect]
     Indication: SCHIZOPHRENIA
     Dosage: 100 MG; HS; ORAL
     Route: 048
     Dates: start: 20011206, end: 20060304

REACTIONS (1)
  - NEOPLASM MALIGNANT [None]
